FAERS Safety Report 8824653 (Version 1)
Quarter: 2012Q4

REPORT INFORMATION
  Report Type: 
  Country: JP (occurrence: JP)
  Receive Date: 20121004
  Receipt Date: 20121004
  Transmission Date: 20130627
  Serious: Yes (Hospitalization)
  Sender: FDA-Public Use
  Company Number: PHHY2012JP085298

PATIENT
  Age: 59 Year
  Sex: Female
  Weight: 48 kg

DRUGS (3)
  1. CICLOSPORIN [Suspect]
     Indication: INTERSTITIAL LUNG DISEASE
     Dosage: 100 mg, QD
     Dates: start: 2006
  2. PREDNISOLONE [Suspect]
     Indication: INTERSTITIAL LUNG DISEASE
     Dosage: 20 mg, QD
     Route: 048
     Dates: start: 2006
  3. PREDNISOLONE [Suspect]
     Dosage: 13 mg, QD
     Route: 048

REACTIONS (5)
  - Intestinal obstruction [Recovering/Resolving]
  - Abdominal distension [Unknown]
  - Emphysema [Recovering/Resolving]
  - Rash [Recovering/Resolving]
  - Erythema [Recovering/Resolving]
